FAERS Safety Report 7674161-5 (Version None)
Quarter: 2011Q3

REPORT INFORMATION
  Report Type: 
  Country: None (occurrence: None)
  Receive Date: 20110810
  Receipt Date: 20110803
  Transmission Date: 20111222
  Serious: Yes (Death, Other)
  Sender: FDA-Public Use
  Company Number: TW-PFIZER INC-2011174803

PATIENT
  Age: 41 Year
  Sex: Female

DRUGS (5)
  1. VINCRISTINE SULFATE [Suspect]
  2. CYCLOPHOSPHAMIDE [Suspect]
  3. PREDNISOLONE [Suspect]
  4. EPIRUBICIN HYDROCHLORIDE [Suspect]
     Indication: LYMPHOMA
  5. GEMTUZUMAB OZOGAMICIN [Suspect]

REACTIONS (2)
  - ACUTE MYELOMONOCYTIC LEUKAEMIA [None]
  - LEUKAEMIA CUTIS [None]
